FAERS Safety Report 18616873 (Version 2)
Quarter: 2020Q4

REPORT INFORMATION
  Report Type: Spontaneous
  Country: IE (occurrence: IE)
  Receive Date: 20201215
  Receipt Date: 20201226
  Transmission Date: 20210114
  Serious: Yes (Disabling)
  Sender: FDA-Public Use
  Company Number: IE-TEVA-2020-IE-1857387

PATIENT
  Age: 43 Year
  Sex: Male
  Weight: 68 kg

DRUGS (2)
  1. ROSUVASTATIN (G) [Suspect]
     Active Substance: ROSUVASTATIN
     Dosage: UNIT DOSE : 10 MG
     Route: 065
     Dates: start: 20120301, end: 20130601
  2. ROSUVASTATIN (G) [Suspect]
     Active Substance: ROSUVASTATIN
     Dosage: UNIT DOSE : 5 MG

REACTIONS (5)
  - Joint instability [Recovered/Resolved]
  - Myalgia [Recovered/Resolved]
  - Pain [Recovered/Resolved]
  - Asthenia [Recovered/Resolved]
  - Muscle strain [Recovered/Resolved]

NARRATIVE: CASE EVENT DATE: 20120822
